FAERS Safety Report 9238353 (Version 1)
Quarter: 2013Q2

REPORT INFORMATION
  Report Type: Spontaneous
  Country: SE (occurrence: None)
  Receive Date: 20130416
  Receipt Date: 20130416
  Transmission Date: 20140414
  Serious: Yes (Other)
  Sender: FDA-Public Use
  Company Number: 1670984

PATIENT
  Age: 34 Year
  Sex: Female

DRUGS (3)
  1. PIPERACILLIN AND TAZOBACTAM [Suspect]
     Indication: PERINEAL INFECTION
     Route: 042
     Dates: start: 20120809, end: 20120809
  2. IPREN [Concomitant]
  3. ALVEDON [Concomitant]

REACTIONS (1)
  - Angioedema [None]
